FAERS Safety Report 9648847 (Version 1)
Quarter: 2013Q4

REPORT INFORMATION
  Report Type: Spontaneous
  Country: US (occurrence: US)
  Receive Date: 20131028
  Receipt Date: 20131028
  Transmission Date: 20140711
  Serious: No
  Sender: FDA-Public Use
  Company Number: US-TEVA-437628USA

PATIENT
  Age: 12 Year
  Sex: Male

DRUGS (1)
  1. QNASL [Suspect]
     Route: 045

REACTIONS (1)
  - Nasal congestion [Unknown]
